FAERS Safety Report 9338188 (Version 1)
Quarter: 2013Q2

REPORT INFORMATION
  Report Type: Report from Study
  Country: MX (occurrence: MX)
  Receive Date: 20130610
  Receipt Date: 20130610
  Transmission Date: 20140414
  Serious: Yes (Death, Other)
  Sender: FDA-Public Use
  Company Number: MX-ROCHE-1233913

PATIENT
  Age: 54 Year
  Sex: Female
  Weight: 70 kg

DRUGS (5)
  1. HERCEPTIN [Suspect]
     Indication: BREAST CANCER METASTATIC
     Route: 065
     Dates: start: 20120101, end: 20120301
  2. HERCEPTIN [Suspect]
     Route: 065
     Dates: start: 20120330, end: 20120901
  3. GEMZAR [Concomitant]
     Indication: BREAST CANCER METASTATIC
     Route: 065
     Dates: start: 20120101, end: 20120301
  4. PACLITAXEL [Concomitant]
     Indication: BREAST CANCER METASTATIC
     Route: 065
     Dates: start: 20120301, end: 20120901
  5. XELODA [Concomitant]
     Indication: BREAST CANCER METASTATIC
     Route: 065
     Dates: start: 20120330, end: 20120901

REACTIONS (3)
  - Death [Fatal]
  - Neurotoxicity [Unknown]
  - Disease progression [Unknown]
